FAERS Safety Report 5570321-8 (Version None)
Quarter: 2007Q4

REPORT INFORMATION
  Report Type: 
  Country: None (occurrence: None)
  Receive Date: 20071219
  Receipt Date: 20071219
  Transmission Date: 20080405
  Serious: Yes (Hospitalization, Other)
  Sender: FDA-Public Use
  Company Number: None

PATIENT
  Age: 71 Year
  Sex: Female
  Weight: 72.5755 kg

DRUGS (4)
  1. DEXAMETHASONE 4MG TAB [Suspect]
     Indication: BRAIN OEDEMA
     Dosage: 4 MG BID PO
     Route: 048
  2. DEXAMETHASONE 4MG TAB [Suspect]
     Indication: LUNG CANCER METASTATIC
     Dosage: 4 MG BID PO
     Route: 048
  3. DEXAMETHASONE 4MG TAB [Suspect]
     Indication: METASTASES TO CENTRAL NERVOUS SYSTEM
     Dosage: 4 MG BID PO
     Route: 048
  4. RADIATION [Concomitant]

REACTIONS (7)
  - BLOOD PRESSURE DECREASED [None]
  - BLOOD SODIUM DECREASED [None]
  - DISORIENTATION [None]
  - HAEMATOCHEZIA [None]
  - ILL-DEFINED DISORDER [None]
  - MENTAL STATUS CHANGES [None]
  - MUSCULAR WEAKNESS [None]
